FAERS Safety Report 15030238 (Version 1)
Quarter: 2018Q2

REPORT INFORMATION
  Report Type: Report from Study
  Country: CN (occurrence: CN)
  Receive Date: 20180619
  Receipt Date: 20180619
  Transmission Date: 20180711
  Serious: Yes (Other)
  Sender: FDA-Public Use
  Company Number: CN-PFIZER INC-2018244925

PATIENT
  Age: 53 Year
  Sex: Male
  Weight: 63 kg

DRUGS (2)
  1. VORICONAZOLE. [Suspect]
     Active Substance: VORICONAZOLE
     Indication: CHRONIC HEPATIC FAILURE
     Dosage: 200 MG, 2X/DAY (LOADING DOSE ON DAY 1, FOLLOWING BY 200 MG DAILY ORALLY OR INTRAVENOUSLY)
  2. VORICONAZOLE. [Suspect]
     Active Substance: VORICONAZOLE
     Dosage: 200 MG, DAILY (ORALLY OR INTRAVENOUSLY OR A FIXED DOSE OF 200 MG DAILY ORALLY OR INTRAVENOUSLY)

REACTIONS (1)
  - Altered state of consciousness [Unknown]
